FAERS Safety Report 4736130-4 (Version None)
Quarter: 2005Q3

REPORT INFORMATION
  Report Type: 
  Country: None (occurrence: None)
  Receive Date: 20050729
  Receipt Date: 20050525
  Transmission Date: 20060218
  Serious: Yes (Other)
  Sender: FDA-Public Use
  Company Number: GXBR2005US00979

PATIENT
  Sex: Male

DRUGS (1)
  1. LORATADINE [Suspect]

REACTIONS (2)
  - CONVULSION [None]
  - HYPERSENSITIVITY [None]
